FAERS Safety Report 7615600-5 (Version None)
Quarter: 2011Q3

REPORT INFORMATION
  Report Type: 
  Country: None (occurrence: None)
  Receive Date: 20110708
  Receipt Date: 20110701
  Transmission Date: 20111222
  Serious: Yes (Other)
  Sender: FDA-Public Use
  Company Number: 1000021612

PATIENT
  Age: 44 Year
  Sex: Female
  Weight: 107.9 kg

DRUGS (13)
  1. DEMADEX (TORSEMIDE)(TORSEMIDE) [Concomitant]
  2. ASPIRIN [Concomitant]
  3. MIRAPEX (PRAMIPEXOLE DIHYDROCHLORIDE)(PRAMIPEXOLE DIHYDROCHLORIDE) [Concomitant]
  4. OMEPRAZOLE [Concomitant]
  5. MAGNESIUM OXIDE (MAGNESIUM OXIDE)(MAGNESIUM OXIDE) [Concomitant]
  6. MELATONIN (MELATONIN) (MELATONIN) [Concomitant]
  7. POTASSIUM (POTASSIUM)(POTASSIUM) [Concomitant]
  8. FISH OIL (FISH OIL) (CAPSULES) (FISH OIL) [Concomitant]
  9. BYSTOLIC [Suspect]
     Indication: HYPERTROPHIC CARDIOMYOPATHY
     Dosage: 20 MG (20 MG, 1 IN 1 D), ORAL
     Route: 048
     Dates: start: 20110330, end: 20110609
  10. NSPRA (EPLERENONE) (EPLERENONE) [Concomitant]
  11. DIFLUCAN (FLUCONAZOLE) (TABLETS) (FLUCONAZOLE) [Concomitant]
  12. NYSTATIN (NYSTATIN) (POWDER) (NYSTATIN) [Concomitant]
  13. BETAMETHASONE (BETAMETHASONE) (OINTMENT) (BETAMETHASONE) [Concomitant]

REACTIONS (2)
  - HOMICIDAL IDEATION [None]
  - SUICIDAL IDEATION [None]
